FAERS Safety Report 10455089 (Version 2)
Quarter: 2014Q3

REPORT INFORMATION
  Report Type: Spontaneous
  Country: DE (occurrence: DE)
  Receive Date: 20140916
  Receipt Date: 20140916
  Transmission Date: 20150326
  Serious: Yes (Other)
  Sender: FDA-Public Use
  Company Number: DE-ROCHE-1360842

PATIENT
  Age: 70 Year
  Sex: Male

DRUGS (7)
  1. FUROSEMIDE. [Concomitant]
     Active Substance: FUROSEMIDE
  2. VEMURAFENIB [Suspect]
     Active Substance: VEMURAFENIB
     Indication: METASTATIC MALIGNANT MELANOMA
     Route: 048
     Dates: start: 20140214
  3. LYRICA [Concomitant]
     Active Substance: PREGABALIN
  4. PANTOPRAZOLE [Concomitant]
     Active Substance: PANTOPRAZOLE SODIUM
  5. AMLODIPIN [Concomitant]
     Active Substance: AMLODIPINE BESYLATE
  6. NOVALGIN [Concomitant]
     Active Substance: METAMIZOLE SODIUM
  7. FORTECORTIN [Concomitant]
     Active Substance: DEXAMETHASONE

REACTIONS (2)
  - Lymphangiosis carcinomatosa [Not Recovered/Not Resolved]
  - Cough [Unknown]

NARRATIVE: CASE EVENT DATE: 20140301
